FAERS Safety Report 5281719-X (Version None)
Quarter: 2007Q1

REPORT INFORMATION
  Report Type: 
  Country: None (occurrence: None)
  Receive Date: 20070330
  Receipt Date: 20070323
  Transmission Date: 20070707
  Serious: Yes (Other)
  Sender: FDA-Public Use
  Company Number: US-GLAXOSMITHKLINE-A0644384A

PATIENT
  Age: 68 Year
  Sex: Male

DRUGS (3)
  1. ADVAIR DISKUS 100/50 [Suspect]
     Indication: EMPHYSEMA
     Dosage: 1PUFF THREE TIMES PER DAY
     Route: 055
     Dates: start: 20050101
  2. COMBIVENT [Concomitant]
  3. NEBULIZER [Concomitant]

REACTIONS (3)
  - MEDICATION ERROR [None]
  - PNEUMONIA [None]
  - PRESCRIBED OVERDOSE [None]
